FAERS Safety Report 6733006-8 (Version None)
Quarter: 2010Q2

REPORT INFORMATION
  Report Type: 
  Country: None (occurrence: None)
  Receive Date: 20100514
  Receipt Date: 20100504
  Transmission Date: 20101027
  Serious: Yes (Death)
  Sender: FDA-Public Use
  Company Number: 1000013801

PATIENT
  Age: 90 Year
  Sex: Female

DRUGS (6)
  1. CITALOPRAM HYDROBROMIDE [Suspect]
     Indication: DEPRESSION
     Dosage: 10 MG (10 MG,1 IN 1 D), ORAL
     Route: 048
  2. ASPIRIN [Suspect]
     Indication: PROPHYLAXIS
     Dosage: 75 MG (75 MG,1 IN 1 D), ORAL
     Route: 048
  3. TRAVATAN [Concomitant]
  4. STILNOCT [Concomitant]
  5. FOTIL [Concomitant]
  6. KALCIPOS [Concomitant]

REACTIONS (3)
  - FEMUR FRACTURE [None]
  - PLATELET COUNT DECREASED [None]
  - SHOCK HAEMORRHAGIC [None]
